FAERS Safety Report 9499024 (Version 1)
Quarter: 2013Q3

REPORT INFORMATION
  Report Type: Spontaneous
  Country: BR (occurrence: BR)
  Receive Date: 20130904
  Receipt Date: 20130904
  Transmission Date: 20140515
  Serious: Yes (Hospitalization, Other)
  Sender: FDA-Public Use
  Company Number: BR-009507513-1309BRA000588

PATIENT
  Age: 28 Year
  Sex: Female
  Weight: 60 kg

DRUGS (1)
  1. NUVARING [Suspect]
     Indication: CONTRACEPTION
     Dosage: UNK
     Route: 067
     Dates: start: 201211, end: 20130811

REACTIONS (4)
  - Ectopic pregnancy [Recovered/Resolved with Sequelae]
  - Fallopian tube operation [Recovering/Resolving]
  - Unintended pregnancy [Recovered/Resolved with Sequelae]
  - Procedural pain [Not Recovered/Not Resolved]
